FAERS Safety Report 4474783-9 (Version None)
Quarter: 2004Q4

REPORT INFORMATION
  Report Type: 
  Country: None (occurrence: None)
  Receive Date: 20041012
  Receipt Date: 20040928
  Transmission Date: 20050328
  Serious: Yes (Hospitalization)
  Sender: FDA-Public Use
  Company Number: 2004JP001780

PATIENT
  Age: 37 Year
  Sex: Male

DRUGS (1)
  1. PROGRAF [Suspect]
     Indication: RENAL TRANSPLANT
     Dosage: 6.00 MG, ORAL
     Route: 048
     Dates: start: 20040714, end: 20040819

REACTIONS (1)
  - RHABDOMYOLYSIS [None]
